FAERS Safety Report 6788337-2 (Version None)
Quarter: 2010Q2

REPORT INFORMATION
  Report Type: 
  Country: None (occurrence: None)
  Receive Date: 20100623
  Receipt Date: 20080609
  Transmission Date: 20101027
  Serious: No
  Sender: FDA-Public Use
  Company Number: US-PFIZER INC-2008012849

PATIENT
  Sex: Female
  Weight: 90.909 kg

DRUGS (13)
  1. XALATAN [Suspect]
     Indication: GLAUCOMA
     Dates: start: 20070101
  2. ALPHAGAN [Concomitant]
     Indication: GLAUCOMA
  3. COSOPT [Concomitant]
     Indication: GLAUCOMA
  4. ARICEPT [Concomitant]
     Indication: HYPERTENSION
  5. ATENOLOL [Concomitant]
     Indication: HYPERTENSION
  6. SIMVASTATIN [Concomitant]
     Indication: BLOOD CHOLESTEROL INCREASED
  7. ALLEGRA [Concomitant]
     Indication: HYPERSENSITIVITY
  8. VITAMIN E [Concomitant]
  9. CENTRUM [Concomitant]
  10. LOVAZA [Concomitant]
  11. CLONIDINE [Concomitant]
  12. CHROMIUM PICOLINATE [Concomitant]
  13. DRUG, UNSPECIFIED [Concomitant]
     Indication: THYROID DISORDER

REACTIONS (6)
  - ERYTHEMA OF EYELID [None]
  - EYE IRRITATION [None]
  - EYE PAIN [None]
  - EYELIDS PRURITUS [None]
  - HYPERAESTHESIA [None]
  - PAIN OF SKIN [None]
